FAERS Safety Report 5532216-5 (Version None)
Quarter: 2007Q4

REPORT INFORMATION
  Report Type: 
  Country: None (occurrence: None)
  Receive Date: 20071203
  Receipt Date: 20071127
  Transmission Date: 20080405
  Serious: Yes (Hospitalization)
  Sender: FDA-Public Use
  Company Number: US-ASTRAZENECA-2006UW24627

PATIENT
  Sex: Female

DRUGS (9)
  1. TOPROL-XL [Suspect]
     Route: 048
  2. CLONIDINE [Suspect]
  3. CYMBALTA [Concomitant]
  4. GABAPENTIN [Concomitant]
  5. NITROGLYCERIN [Concomitant]
     Indication: CHEST PAIN
     Route: 060
  6. PERCOCET [Concomitant]
     Indication: PAIN
     Dosage: 5/125 MG PRN
  7. DETROL [Concomitant]
  8. SANCTURA [Concomitant]
  9. PILL FOR ANGINA [Concomitant]
     Indication: ANGINA UNSTABLE

REACTIONS (2)
  - HYPERTENSION [None]
  - MENTAL STATUS CHANGES [None]
